FAERS Safety Report 5168233-7 (Version None)
Quarter: 2006Q4

REPORT INFORMATION
  Report Type: 
  Country: None (occurrence: None)
  Receive Date: 20061208
  Receipt Date: 20061106
  Transmission Date: 20070319
  Serious: Yes (Hospitalization)
  Sender: FDA-Public Use
  Company Number: JP-JPN-A200604719

PATIENT
  Age: 82 Year
  Sex: Male
  Weight: 36 kg

DRUGS (11)
  1. VALTREX [Suspect]
     Indication: HERPES ZOSTER
     Dosage: 1000MG THREE TIMES PER DAY
     Route: 048
     Dates: start: 20061030, end: 20061104
  2. OMEPRAZOLE [Concomitant]
     Indication: GASTRIC ULCER
     Route: 048
     Dates: end: 20061104
  3. FUROSEMIDE [Concomitant]
     Route: 048
     Dates: end: 20061104
  4. PREDONINE [Concomitant]
     Indication: ASTHMA
     Route: 048
     Dates: end: 20061104
  5. ADALAT [Concomitant]
     Indication: HYPERTENSION
     Route: 048
     Dates: end: 20061104
  6. MUCOSOLVAN [Concomitant]
     Indication: BRONCHITIS
     Route: 048
     Dates: end: 20061104
  7. GENTACIN [Concomitant]
     Indication: HERPES ZOSTER
     Route: 062
     Dates: start: 20061030
  8. ITRIZOLE [Concomitant]
     Indication: BRONCHOPULMONARY ASPERGILLOSIS
     Dosage: 150MG PER DAY
     Route: 048
     Dates: end: 20061104
  9. SULPERAZON [Concomitant]
     Indication: INFUSION
     Dosage: 2G PER DAY
     Route: 042
     Dates: start: 20061016, end: 20061030
  10. SEISHOKU [Concomitant]
     Indication: INFUSION
     Dosage: 500ML PER DAY
     Route: 042
     Dates: start: 20061030, end: 20061030
  11. ZOVIRAX [Concomitant]
     Dosage: 500MG PER DAY
     Route: 042
     Dates: start: 20061030, end: 20061030

REACTIONS (7)
  - BLOOD CREATININE INCREASED [None]
  - BLOOD UREA INCREASED [None]
  - DEPRESSED LEVEL OF CONSCIOUSNESS [None]
  - EATING DISORDER [None]
  - GENERAL PHYSICAL HEALTH DETERIORATION [None]
  - OLIGURIA [None]
  - RENAL FAILURE ACUTE [None]
